FAERS Safety Report 8067434 (Version 2)
Quarter: 2013Q1

REPORT INFORMATION
  Report Type: Spontaneous
  Country: US (occurrence: US)
  Receive Date: 20110803
  Receipt Date: 20130114
  Transmission Date: 20140127
  Serious: Yes (Death, Hospitalization)
  Sender: FDA-Public Use
  Company Number: US-GLAXOSMITHKLINE-A0928218A

PATIENT
  Age: 64 Year
  Sex: Female

DRUGS (1)
  1. AVANDIA [Suspect]
     Indication: DIABETES MELLITUS
     Dosage: 2MG PER DAY
     Route: 048
     Dates: end: 20060713

REACTIONS (6)
  - Death [Fatal]
  - Myocardial infarction [Unknown]
  - Hepatic infection [Unknown]
  - Kidney infection [Unknown]
  - Localised infection [Unknown]
  - Weight increased [Unknown]
